FAERS Safety Report 4788482-7 (Version None)
Quarter: 2005Q4

REPORT INFORMATION
  Report Type: 
  Country: None (occurrence: None)
  Receive Date: 20051005
  Receipt Date: 20050927
  Transmission Date: 20060501
  Serious: Yes (Other)
  Sender: FDA-Public Use
  Company Number: 2005UW14600

PATIENT
  Age: 62 Year
  Sex: Male

DRUGS (2)
  1. NEXIUM [Suspect]
     Route: 042
  2. TRAZODONE [Suspect]

REACTIONS (9)
  - BLOOD CREATININE INCREASED [None]
  - BLOOD UREA INCREASED [None]
  - FACE OEDEMA [None]
  - FATIGUE [None]
  - GLOMERULONEPHRITIS [None]
  - KIDNEY FIBROSIS [None]
  - OEDEMA PERIPHERAL [None]
  - PROTEINURIA [None]
  - RENAL TUBULAR NECROSIS [None]
